FAERS Safety Report 18266275 (Version 3)
Quarter: 2020Q4

REPORT INFORMATION
  Report Type: Report from Study
  Country: None (occurrence: US)
  Receive Date: 20200915
  Receipt Date: 20201105
  Transmission Date: 20210113
  Serious: Yes (Hospitalization, Other)
  Sender: FDA-Public Use
  Company Number: US-ABBVIE-20K-163-3557943-00

PATIENT
  Age: 68 Year
  Sex: Female

DRUGS (3)
  1. PLAQUENIL [Suspect]
     Active Substance: HYDROXYCHLOROQUINE SULFATE
     Indication: PRODUCT USED FOR UNKNOWN INDICATION
     Route: 065
  2. HUMIRA [Suspect]
     Active Substance: ADALIMUMAB
     Route: 058
  3. HUMIRA [Suspect]
     Active Substance: ADALIMUMAB
     Indication: RHEUMATOID ARTHRITIS
     Route: 058
     Dates: start: 2004, end: 201912

REACTIONS (18)
  - Back pain [Not Recovered/Not Resolved]
  - Injection site pain [Recovered/Resolved]
  - Intervertebral disc compression [Recovering/Resolving]
  - Neuropathy peripheral [Recovering/Resolving]
  - Spinal operation [Recovered/Resolved]
  - Post procedural infection [Recovered/Resolved]
  - Hypoaesthesia [Recovering/Resolving]
  - Spinal decompression [Recovering/Resolving]
  - Foot fracture [Recovering/Resolving]
  - Neck pain [Not Recovered/Not Resolved]
  - Retinal injury [Not Recovered/Not Resolved]
  - Vision blurred [Not Recovered/Not Resolved]
  - Arthralgia [Not Recovered/Not Resolved]
  - Post procedural infection [Recovered/Resolved]
  - Spinal fusion surgery [Recovering/Resolving]
  - Spinal operation [Not Recovered/Not Resolved]
  - Foot fracture [Recovered/Resolved]
  - Post procedural complication [Unknown]

NARRATIVE: CASE EVENT DATE: 2018
